FAERS Safety Report 23011674 (Version 7)
Quarter: 2024Q1

REPORT INFORMATION
  Report Type: Spontaneous
  Country: US (occurrence: US)
  Receive Date: 20230929
  Receipt Date: 20240208
  Transmission Date: 20240410
  Serious: No
  Sender: FDA-Public Use
  Company Number: US-PFIZER INC-202300311051

PATIENT
  Age: 66 Year
  Sex: Male
  Weight: 102.06 kg

DRUGS (2)
  1. SOMAVERT [Suspect]
     Active Substance: PEGVISOMANT
     Indication: Acromegaly
     Dosage: 20 MG, WEEKLY
     Dates: start: 20230906
  2. SOMAVERT [Suspect]
     Active Substance: PEGVISOMANT
     Dosage: 20 MG, 3 TIMES A WEEK
     Dates: start: 202306

REACTIONS (6)
  - Blood creatinine increased [Unknown]
  - Influenza like illness [Recovered/Resolved]
  - Oropharyngeal pain [Unknown]
  - Pain [Unknown]
  - Off label use [Unknown]
  - Incorrect route of product administration [Unknown]
